FAERS Safety Report 20818006 (Version 1)
Quarter: 2022Q2

REPORT INFORMATION
  Report Type: Spontaneous
  Country: US (occurrence: US)
  Receive Date: 20220512
  Receipt Date: 20220512
  Transmission Date: 20220720
  Serious: Yes (Hospitalization, Disabling, Other)
  Sender: FDA-Public Use
  Company Number: US-BAYER-2022A063330

PATIENT
  Age: 60 Year
  Sex: Male

DRUGS (6)
  1. CIPROFLOXACIN [Suspect]
     Active Substance: CIPROFLOXACIN
     Route: 048
  2. AUBAGIO [Concomitant]
     Active Substance: TERIFLUNOMIDE
     Indication: Multiple sclerosis
  3. HYDROCODONE [Concomitant]
     Active Substance: HYDROCODONE
  4. IBUPROFEN [Concomitant]
     Active Substance: IBUPROFEN
  5. ACETAMINOPHEN [Concomitant]
     Active Substance: ACETAMINOPHEN
  6. CORTISONE [Concomitant]
     Active Substance: CORTISONE

REACTIONS (28)
  - Renal failure [None]
  - Fluid retention [None]
  - Arthralgia [None]
  - Walking aid user [None]
  - Joint injury [None]
  - Hemiparesis [None]
  - Back disorder [None]
  - Condition aggravated [None]
  - Wheelchair user [None]
  - Disability [None]
  - Loss of personal independence in daily activities [Not Recovered/Not Resolved]
  - Myocardial infarction [Recovered/Resolved]
  - Fall [None]
  - Wound [None]
  - Spinal fusion surgery [None]
  - Balance disorder [Not Recovered/Not Resolved]
  - Ligament sprain [Not Recovered/Not Resolved]
  - Limb injury [Not Recovered/Not Resolved]
  - Exostosis [None]
  - Urinary incontinence [Recovering/Resolving]
  - Abdominal pain lower [None]
  - Haemoptysis [None]
  - Confusional state [None]
  - Gait disturbance [None]
  - Gastrointestinal inflammation [None]
  - Weight decreased [None]
  - Muscle strain [None]
  - Asthenia [None]
